FAERS Safety Report 17479954 (Version 1)
Quarter: 2020Q1

REPORT INFORMATION
  Report Type: Spontaneous
  Country: FR (occurrence: FR)
  Receive Date: 20200228
  Receipt Date: 20200228
  Transmission Date: 20200409
  Serious: Yes (Death)
  Sender: FDA-Public Use
  Company Number: FR-ETHYPHARM-202000204

PATIENT
  Age: 35 Year
  Sex: Male

DRUGS (5)
  1. DIAZEPAM. [Suspect]
     Active Substance: DIAZEPAM
     Indication: PRODUCT USED FOR UNKNOWN INDICATION
     Dosage: NON RENSEIGN?E
     Route: 065
  2. BUPRENORPHINE. [Suspect]
     Active Substance: BUPRENORPHINE
     Indication: PRODUCT USED FOR UNKNOWN INDICATION
     Dosage: NON RENSEIGN?E
     Route: 065
  3. CANNABIS [Suspect]
     Active Substance: CANNABIS SATIVA SUBSP. INDICA TOP
     Indication: DRUG ABUSE
     Dosage: NON RENSEIGN?E
     Route: 065
  4. METHADONE AP-HP [Suspect]
     Active Substance: METHADONE HYDROCHLORIDE
     Indication: PRODUCT USED FOR UNKNOWN INDICATION
     Dosage: NON RENSEIGN?E
     Route: 065
  5. ALPRAZOLAM. [Suspect]
     Active Substance: ALPRAZOLAM
     Indication: PRODUCT USED FOR UNKNOWN INDICATION
     Dosage: NON RENSEIGN?E
     Route: 065

REACTIONS (2)
  - Asphyxia [Fatal]
  - Drug abuse [Fatal]

NARRATIVE: CASE EVENT DATE: 20190819
